FAERS Safety Report 16003299 (Version 1)
Quarter: 2019Q1

REPORT INFORMATION
  Report Type: Spontaneous
  Country: FR (occurrence: FR)
  Receive Date: 20190225
  Receipt Date: 20190225
  Transmission Date: 20190418
  Serious: Yes (Hospitalization)
  Sender: FDA-Public Use
  Company Number: FR-TEVA-2019-FR-1015498

PATIENT
  Age: 76 Year
  Sex: Female

DRUGS (2)
  1. MYOCET [Suspect]
     Active Substance: DOXORUBICIN
     Indication: HEPATIC LESION
     Route: 042
     Dates: start: 20131019
  2. ENDOXAN [Suspect]
     Active Substance: CYCLOPHOSPHAMIDE
     Indication: HEPATIC LESION
     Route: 042
     Dates: start: 20131019

REACTIONS (1)
  - Febrile bone marrow aplasia [Not Recovered/Not Resolved]

NARRATIVE: CASE EVENT DATE: 20131028
